FAERS Safety Report 18313645 (Version 1)
Quarter: 2020Q3

REPORT INFORMATION
  Report Type: Report from Study
  Country: US (occurrence: US)
  Receive Date: 20200925
  Receipt Date: 20200925
  Transmission Date: 20201103
  Serious: Yes (Other)
  Sender: FDA-Public Use
  Company Number: US-JNJFOC-A-NJ2011-46964

PATIENT
  Age: 63 Year
  Sex: Female
  Weight: 81.63 kg

DRUGS (10)
  1. TRACLEER [Concomitant]
     Active Substance: BOSENTAN
     Indication: PULMONARY ARTERIAL HYPERTENSION
     Dosage: UNK
     Route: 048
     Dates: start: 200610
  2. SILDENAFIL. [Concomitant]
     Active Substance: SILDENAFIL
  3. VELETRI [Suspect]
     Active Substance: EPOPROSTENOL
     Indication: PULMONARY ARTERIAL HYPERTENSION
     Dosage: 40 NG/KG, PER MIN
     Route: 042
     Dates: start: 20110118
  4. DILTIAZEM. [Concomitant]
     Active Substance: DILTIAZEM
  5. VELETRI [Suspect]
     Active Substance: EPOPROSTENOL
     Dosage: 50 NG/KG PER MIN
     Route: 042
  6. VELETRI [Suspect]
     Active Substance: EPOPROSTENOL
     Dosage: 50 NG/KG/MIN
     Route: 042
  7. VELETRI [Suspect]
     Active Substance: EPOPROSTENOL
     Dosage: UNK
     Route: 042
  8. VELETRI [Suspect]
     Active Substance: EPOPROSTENOL
     Dosage: UNK
     Route: 042
  9. COUMADIN [Concomitant]
     Active Substance: WARFARIN SODIUM
  10. REVATIO [Concomitant]
     Active Substance: SILDENAFIL CITRATE

REACTIONS (28)
  - Diarrhoea [Not Recovered/Not Resolved]
  - Nausea [Unknown]
  - Abdominal discomfort [Unknown]
  - Rhinorrhoea [Unknown]
  - Sneezing [Unknown]
  - Rash [Not Recovered/Not Resolved]
  - Flushing [Unknown]
  - Fatigue [Unknown]
  - Paranasal sinus discomfort [Unknown]
  - Visual impairment [Unknown]
  - Catheter site erythema [Unknown]
  - Pain in jaw [Not Recovered/Not Resolved]
  - Skin discolouration [Unknown]
  - Cataract [Unknown]
  - Device occlusion [Unknown]
  - Eye laser surgery [Unknown]
  - Macular degeneration [Unknown]
  - Sinus headache [Unknown]
  - Dyspnoea exertional [Not Recovered/Not Resolved]
  - Catheter site pain [Unknown]
  - Application site pruritus [Unknown]
  - Multiple allergies [Unknown]
  - Cough [Recovered/Resolved]
  - Dyspnoea [Unknown]
  - Device alarm issue [Unknown]
  - Catheter site haemorrhage [Unknown]
  - Nasopharyngitis [Unknown]
  - Bronchitis [Unknown]

NARRATIVE: CASE EVENT DATE: 20110303
